FAERS Safety Report 9298745 (Version 2)
Quarter: 2013Q2

REPORT INFORMATION
  Report Type: Spontaneous
  Country: JP (occurrence: None)
  Receive Date: 20130515
  Receipt Date: 20130529
  Transmission Date: 20140414
  Serious: Yes (Hospitalization, Other)
  Sender: FDA-Public Use
  Company Number: ENT 2013-0084

PATIENT
  Age: 69 Year
  Sex: Female
  Weight: 56 kg

DRUGS (4)
  1. COMTAN (ENTACAPONE) [Suspect]
     Indication: PARKINSON^S DISEASE
     Route: 048
     Dates: start: 20130123
  2. REQUIP [Suspect]
     Indication: PARKINSON^S DISEASE
     Route: 048
     Dates: start: 20121205, end: 20130122
  3. NEODOPASTON [Suspect]
     Indication: PARKINSON^S DISEASE
     Route: 048
     Dates: start: 20121219, end: 20121225
  4. FP [Suspect]
     Indication: PARKINSON^S DISEASE
     Route: 048
     Dates: start: 20121226

REACTIONS (10)
  - Fall [None]
  - Hallucination [None]
  - Scar [None]
  - Mental disorder [None]
  - Rheumatoid arthritis [None]
  - Decubitus ulcer [None]
  - Infection [None]
  - Tooth disorder [None]
  - Gait disturbance [None]
  - Decubitus ulcer [None]
